FAERS Safety Report 23463410 (Version 1)
Quarter: 2024Q1

REPORT INFORMATION
  Report Type: Spontaneous
  Country: BR (occurrence: BR)
  Receive Date: 20240131
  Receipt Date: 20240131
  Transmission Date: 20240409
  Serious: Yes (Other)
  Sender: FDA-Public Use
  Company Number: BR-ELI_LILLY_AND_COMPANY-BR202401012815

PATIENT
  Sex: Male

DRUGS (1)
  1. BASAGLAR [Suspect]
     Active Substance: INSULIN GLARGINE
     Indication: Product used for unknown indication
     Dosage: 25 INTERNATIONAL UNIT, UNKNOWN
     Route: 065
     Dates: start: 2020

REACTIONS (3)
  - Dementia Alzheimer^s type [Unknown]
  - Dementia [Unknown]
  - Memory impairment [Unknown]

NARRATIVE: CASE EVENT DATE: 20240101
